FAERS Safety Report 5484078-2 (Version None)
Quarter: 2007Q4

REPORT INFORMATION
  Report Type: 
  Country: None (occurrence: None)
  Receive Date: 20071009
  Receipt Date: 20071009
  Transmission Date: 20080405
  Serious: Yes (Hospitalization)
  Sender: FDA-Public Use
  Company Number: None

PATIENT
  Age: 58 Year
  Sex: Male
  Weight: 118.2074 kg

DRUGS (20)
  1. TAXOTERE [Suspect]
     Indication: PROSTATE CANCER
     Dosage: 110 MG IV Q 21 D
     Route: 042
     Dates: start: 20070914
  2. KETOCONAZOLE [Suspect]
     Indication: PROSTATE CANCER
     Dosage: 400 MG PO BID
     Route: 048
     Dates: start: 20070915, end: 20071004
  3. ALBUTEROL [Concomitant]
  4. CLYLOBENZAPRINE [Concomitant]
  5. DEXAMETHASONE [Concomitant]
  6. EZETIMIBE [Concomitant]
  7. FLUNISOLIDE [Concomitant]
  8. GABAPENTIN [Concomitant]
  9. GLYBURIDE [Concomitant]
  10. HYDROCORTISONE [Concomitant]
  11. LISINOPRIL [Concomitant]
  12. METFORMIN [Concomitant]
  13. METOPROLOL [Concomitant]
  14. MOMETASONE FUROATE [Concomitant]
  15. NIFEDIPINE [Concomitant]
  16. NITROGLYCERIN [Concomitant]
  17. OMEPRAZOLE [Concomitant]
  18. ROSIGLITAZONE [Concomitant]
  19. TERAZOSIN HCL [Concomitant]
  20. TRAMADOL HCL [Concomitant]

REACTIONS (14)
  - ABNORMAL BEHAVIOUR [None]
  - BACTERIAL INFECTION [None]
  - BLOOD CREATININE INCREASED [None]
  - BLOOD SODIUM DECREASED [None]
  - BLOOD UREA INCREASED [None]
  - CULTURE POSITIVE [None]
  - DISTURBANCE IN ATTENTION [None]
  - HAEMOGLOBIN DECREASED [None]
  - HYPERGLYCAEMIA [None]
  - METABOLIC ACIDOSIS [None]
  - MUSCULAR WEAKNESS [None]
  - PNEUMONIA [None]
  - THROAT IRRITATION [None]
  - WEIGHT INCREASED [None]
